FAERS Safety Report 12481597 (Version 3)
Quarter: 2016Q2

REPORT INFORMATION
  Report Type: Spontaneous
  Country: FR (occurrence: FR)
  Receive Date: 20160620
  Receipt Date: 20160630
  Transmission Date: 20160815
  Serious: Yes (Other)
  Sender: FDA-Public Use
  Company Number: FR-PFIZER INC-2016304941

PATIENT
  Sex: Female

DRUGS (5)
  1. IMOVANE [Concomitant]
     Active Substance: ZOPICLONE
     Dosage: UNK
     Dates: start: 201604, end: 201606
  2. AUGMENTIN [Concomitant]
     Active Substance: AMOXICILLIN\CLAVULANATE POTASSIUM
     Indication: DENTAL OPERATION
     Dosage: UNK
     Dates: start: 201604
  3. EFFEXOR LP [Suspect]
     Active Substance: VENLAFAXINE HYDROCHLORIDE
     Dosage: 75 MG, UNK
     Dates: start: 2016
  4. EFFEXOR LP [Suspect]
     Active Substance: VENLAFAXINE HYDROCHLORIDE
     Dosage: 37.5 MG, UNK
     Dates: start: 201604, end: 2016
  5. SOLUPRED /00016201/ [Concomitant]
     Active Substance: PREDNISOLONE
     Indication: DENTAL OPERATION
     Dosage: UNK
     Dates: start: 201604

REACTIONS (7)
  - Intestinal transit time abnormal [Not Recovered/Not Resolved]
  - Haematochezia [Recovered/Resolved]
  - Mucous stools [Not Recovered/Not Resolved]
  - Flatulence [Not Recovered/Not Resolved]
  - Diarrhoea [Not Recovered/Not Resolved]
  - Gastrointestinal inflammation [Not Recovered/Not Resolved]
  - Gastrointestinal disorder [Unknown]

NARRATIVE: CASE EVENT DATE: 2016
